FAERS Safety Report 4607479-0 (Version None)
Quarter: 2005Q1

REPORT INFORMATION
  Report Type: 
  Country: None (occurrence: None)
  Receive Date: 20050314
  Receipt Date: 20050228
  Transmission Date: 20050727
  Serious: Yes (Life-Threatening)
  Sender: FDA-Public Use
  Company Number: IT-JNJFOC-20050301708

PATIENT
  Age: 76 Year
  Sex: Male

DRUGS (5)
  1. TRAMADOL HCL [Suspect]
     Route: 042
  2. HEPARIN [Concomitant]
  3. ONDANSETRON [Concomitant]
  4. GLIBENCLAMIDE [Concomitant]
  5. ACENOCOUMAROL [Concomitant]

REACTIONS (7)
  - DYSPNOEA [None]
  - FATIGUE [None]
  - HYPERHIDROSIS [None]
  - MUSCLE RIGIDITY [None]
  - NAUSEA [None]
  - STRIDOR [None]
  - VOCAL CORD DISORDER [None]
